FAERS Safety Report 10466398 (Version 1)
Quarter: 2014Q3

REPORT INFORMATION
  Report Type: Spontaneous
  Country: BE (occurrence: None)
  Receive Date: 20140918
  Receipt Date: 20140918
  Transmission Date: 20150326
  Serious: Yes (Death)
  Sender: FDA-Public Use
  Company Number: FK201403688

PATIENT
  Age: 44 Year
  Sex: Male

DRUGS (11)
  1. METHYLPREDNISOLONE [Suspect]
     Active Substance: METHYLPREDNISOLONE
     Indication: PRODUCT USED FOR UNKNOWN INDICATION
  2. ZIDOVUDINE (ZIDOVUDINE) [Concomitant]
     Active Substance: ZIDOVUDINE
  3. ISONIAZID (ISONIAZID) [Concomitant]
     Active Substance: ISONIAZID
  4. SAQUINAVIR (SAQUINAVIR) [Concomitant]
  5. LAMIVUDINE (LAMIVUDINE) [Concomitant]
     Active Substance: LAMIVUDINE
  6. ABACAVIR (ABACAVIR) [Concomitant]
     Active Substance: ABACAVIR
  7. PYRAZINAMIDE (PYRAZINAMIDE) [Concomitant]
     Active Substance: PYRAZINAMIDE
  8. ETHAMBUTOL [Concomitant]
     Active Substance: ETHAMBUTOL HYDROCHLORIDE
  9. CLARITHROMYCIN (CLARITHROMYCIN) [Concomitant]
     Active Substance: CLARITHROMYCIN
  10. RIFAMPICIN (RIFAMPICIN) [Concomitant]
     Active Substance: RIFAMPIN
  11. RITONAVIR (RITONAVIR) [Concomitant]
     Active Substance: RITONAVIR

REACTIONS (7)
  - Cytomegalovirus infection [None]
  - Pneumonia necrotising [None]
  - Progressive multifocal leukoencephalopathy [None]
  - Brain oedema [None]
  - Bronchopulmonary aspergillosis [None]
  - Immune reconstitution inflammatory syndrome [None]
  - Pulmonary oedema [None]
